FAERS Safety Report 12750600 (Version 1)
Quarter: 2016Q3

REPORT INFORMATION
  Report Type: Spontaneous
  Country: US (occurrence: US)
  Receive Date: 20160916
  Receipt Date: 20160916
  Transmission Date: 20161109
  Serious: No
  Sender: FDA-Public Use
  Company Number: US-JNJFOC-20160705437

PATIENT
  Sex: Female
  Weight: 68.04 kg

DRUGS (5)
  1. AXERT [Suspect]
     Active Substance: ALMOTRIPTAN MALATE
     Indication: MIGRAINE
     Route: 048
     Dates: start: 201604
  2. FLEXERIL [Concomitant]
     Active Substance: CYCLOBENZAPRINE HYDROCHLORIDE
     Indication: MUSCLE TIGHTNESS
     Dosage: AS NEEDED
     Route: 048
  3. BOTOX [Concomitant]
     Active Substance: ONABOTULINUMTOXINA
     Dosage: AS NEEDED
     Route: 065
  4. AXERT [Suspect]
     Active Substance: ALMOTRIPTAN MALATE
     Indication: MIGRAINE
     Route: 048
     Dates: start: 201604, end: 201604
  5. AXERT [Suspect]
     Active Substance: ALMOTRIPTAN MALATE
     Indication: MIGRAINE
     Dosage: FROM OVER 10 YEARS AGO
     Route: 048
     Dates: end: 201604

REACTIONS (2)
  - Product distribution issue [Unknown]
  - Drug ineffective [Unknown]
